FAERS Safety Report 4363832-4 (Version None)
Quarter: 2004Q2

REPORT INFORMATION
  Report Type: 
  Country: None (occurrence: None)
  Receive Date: 20040514
  Receipt Date: 20040504
  Transmission Date: 20050107
  Serious: Yes (Disabling)
  Sender: FDA-Public Use
  Company Number: SAGL-ZLB/ 04/04/ UNK

PATIENT
  Age: 75 Year
  Sex: Male
  Weight: 69.4 kg

DRUGS (6)
  1. SANDOGLOBULIN (IMMUNOGLOBULIN HUMAN NORMAL) (SOLUTION) [Suspect]
     Indication: ANTIBODY TEST POSITIVE
     Dosage: 30 G,   I.V.
     Route: 042
     Dates: start: 20040119, end: 20040123
  2. SANDOGLOBULIN (IMMUNOGLOBULIN HUMAN NORMAL) (SOLUTION) [Suspect]
     Indication: NEUROPATHY PERIPHERAL
     Dosage: 30 G,   I.V.
     Route: 042
     Dates: start: 20040119, end: 20040123
  3. ASPIRIN [Concomitant]
  4. OMEPRAZOLE [Concomitant]
  5. THIAMINE (THIAMINE) [Concomitant]
  6. TIOTROPIUM [Concomitant]

REACTIONS (2)
  - CHILLS [None]
  - URINARY TRACT INFECTION STAPHYLOCOCCAL [None]
